FAERS Safety Report 21059509 (Version 5)
Quarter: 2022Q4

REPORT INFORMATION
  Report Type: Report from Study
  Country: CN (occurrence: None)
  Receive Date: 20220708
  Receipt Date: 20221021
  Transmission Date: 20230113
  Serious: Yes (Death)
  Sender: FDA-Public Use
  Company Number: CN-Eisai Medical Research-EC-2022-118774

PATIENT
  Age: 62 Year
  Sex: Female
  Weight: 46 kg

DRUGS (10)
  1. LENVATINIB [Suspect]
     Active Substance: LENVATINIB
     Indication: Oesophageal adenocarcinoma
     Route: 048
     Dates: start: 20220531, end: 20220704
  2. LENVATINIB [Suspect]
     Active Substance: LENVATINIB
     Indication: Adenocarcinoma gastric
  3. PEMBROLIZUMAB [Suspect]
     Active Substance: PEMBROLIZUMAB
     Indication: Oesophageal adenocarcinoma
     Route: 041
     Dates: start: 20220531, end: 20220531
  4. PEMBROLIZUMAB [Suspect]
     Active Substance: PEMBROLIZUMAB
     Indication: Adenocarcinoma gastric
  5. CAPECITABINE [Suspect]
     Active Substance: CAPECITABINE
     Indication: Oesophageal adenocarcinoma
     Dosage: TWICE A DAY FOR 14 DAYS EVERY 3 WEEKS, CYCLICAL, FLUCTUATED DOSAGE
     Route: 048
     Dates: start: 20220531, end: 20220704
  6. CAPECITABINE [Suspect]
     Active Substance: CAPECITABINE
     Indication: Adenocarcinoma gastric
  7. OXALIPLATIN [Suspect]
     Active Substance: OXALIPLATIN
     Indication: Oesophageal adenocarcinoma
     Route: 041
     Dates: start: 20220531, end: 20220621
  8. OXALIPLATIN [Suspect]
     Active Substance: OXALIPLATIN
     Indication: Adenocarcinoma gastric
  9. AZASETRON HYDROCHLORIDE;SODIUM CHLORIDE [Concomitant]
     Route: 041
     Dates: start: 20220621, end: 20220621
  10. TRAMADOL HYDROCHLORIDE [Concomitant]
     Active Substance: TRAMADOL HYDROCHLORIDE
     Dates: start: 20220704, end: 20220704

REACTIONS (1)
  - Gastric perforation [Fatal]

NARRATIVE: CASE EVENT DATE: 20220704
